FAERS Safety Report 23591355 (Version 5)
Quarter: 2025Q2

REPORT INFORMATION
  Report Type: Report from Study
  Country: US (occurrence: None)
  Receive Date: 20240304
  Receipt Date: 20250529
  Transmission Date: 20250716
  Serious: Yes (Other)
  Sender: INCYTE
  Company Number: US-INCYTE CORPORATION-2024IN002150

PATIENT
  Age: 87 Year
  Weight: 56.145 kg

DRUGS (11)
  1. JAKAFI [Suspect]
     Active Substance: RUXOLITINIB
     Indication: Polycythaemia vera
     Dosage: 10 MILLIGRAM, BID (TAKING FIVE TIMES A WEEK), (WITH OR WITHOUT FOOD, AVOID GRAPEFRUIT PRODUCTS))
  2. JAKAFI [Suspect]
     Active Substance: RUXOLITINIB
  3. JAKAFI [Suspect]
     Active Substance: RUXOLITINIB
     Dosage: 5 MILLIGRAM, QD
  4. VITAMIN B12 [Concomitant]
     Active Substance: CYANOCOBALAMIN
     Indication: Product used for unknown indication
     Dosage: 1000 MICROGRAM, QD
  5. VITAMIN D NOS [Concomitant]
     Active Substance: CHOLECALCIFEROL\ERGOCALCIFEROL
     Indication: Product used for unknown indication
     Dosage: 1000 INTERNATIONAL UNIT, QD
  6. PRILOSEC [Concomitant]
     Active Substance: OMEPRAZOLE MAGNESIUM
     Indication: Product used for unknown indication
     Dosage: 40 MILLIGRAM, QD (2 CAPSULES OF 20MG 30MINUTES BEFORE MORNING MEAL)
  7. LIDOCAINE [Concomitant]
     Active Substance: LIDOCAINE
     Indication: Product used for unknown indication
     Dosage: 5 PERCENT, QD (1 PATCH DAILY AND REMOVE AFTER 12 HOURS)
     Route: 065
  8. MELOXICAM [Concomitant]
     Active Substance: MELOXICAM
     Indication: Product used for unknown indication
     Dosage: 7.5 MILLIGRAM, QD
     Route: 065
  9. ATORVASTATIN CALCIUM [Concomitant]
     Active Substance: ATORVASTATIN CALCIUM
     Indication: Product used for unknown indication
     Dosage: 10 MILLIGRAM, QD
     Route: 065
  10. HYDROCHLOROTHIAZIDE [Concomitant]
     Active Substance: HYDROCHLOROTHIAZIDE
     Indication: Product used for unknown indication
     Dosage: 25 MILLIGRAM, QD
     Route: 065
  11. LEVOTHYROXINE SODIUM [Concomitant]
     Active Substance: LEVOTHYROXINE SODIUM
     Indication: Product used for unknown indication
     Dosage: 50 MICROGRAM, QD (EVERY MORNING IN AN EMPTY STOMACH)
     Route: 065

REACTIONS (23)
  - Squamous cell carcinoma of skin [Unknown]
  - Cough [Unknown]
  - Tooth disorder [Unknown]
  - Impaired healing [Unknown]
  - Oesophagitis [Unknown]
  - Hiatus hernia [Unknown]
  - Blood lactate dehydrogenase decreased [Unknown]
  - Light chain analysis increased [Not Recovered/Not Resolved]
  - Light chain analysis abnormal [Unknown]
  - Mean platelet volume [Unknown]
  - Red blood cell nucleated morphology present [Unknown]
  - Blood potassium decreased [Unknown]
  - Blood urea increased [Unknown]
  - Alanine aminotransferase decreased [Unknown]
  - Blood glucose increased [Unknown]
  - Blood immunoglobulin A decreased [Unknown]
  - Blood immunoglobulin G increased [Unknown]
  - Blood immunoglobulin M increased [Unknown]
  - Rhinitis allergic [Unknown]
  - Abdominal pain upper [Recovered/Resolved]
  - Flank pain [Recovered/Resolved]
  - Anaemia [Recovering/Resolving]
  - Platelet count decreased [Not Recovered/Not Resolved]
